FAERS Safety Report 9811834 (Version 10)
Quarter: 2015Q4

REPORT INFORMATION
  Report Type: Spontaneous
  Country: US (occurrence: US)
  Receive Date: 20140110
  Receipt Date: 20151118
  Transmission Date: 20160305
  Serious: Yes (Death, Other)
  Sender: FDA-Public Use
  Company Number: US-SANOFI-AVENTIS-2013SA058783

PATIENT
  Age: 72 Year
  Sex: Male
  Weight: 72.57 kg

DRUGS (5)
  1. ASPIRIN. [Suspect]
     Active Substance: ASPIRIN
     Route: 065
     Dates: start: 20110728, end: 20130130
  2. SIMVASTATIN. [Concomitant]
     Active Substance: SIMVASTATIN
  3. PLAVIX [Suspect]
     Active Substance: CLOPIDOGREL BISULFATE
     Indication: TRANSIENT ISCHAEMIC ATTACK
     Route: 048
     Dates: start: 20081027, end: 20110728
  4. ASPIRIN. [Suspect]
     Active Substance: ASPIRIN
     Route: 065
  5. PLAVIX [Suspect]
     Active Substance: CLOPIDOGREL BISULFATE
     Indication: CEREBROVASCULAR ACCIDENT
     Route: 048
     Dates: start: 20081027, end: 20110728

REACTIONS (4)
  - Multiple injuries [Not Recovered/Not Resolved]
  - Gastrointestinal disorder [Unknown]
  - Ulcer haemorrhage [Unknown]
  - Gastrointestinal haemorrhage [Unknown]

NARRATIVE: CASE EVENT DATE: 201107
